FAERS Safety Report 6637835-0 (Version None)
Quarter: 2010Q1

REPORT INFORMATION
  Report Type: 
  Country: None (occurrence: None)
  Receive Date: 20100317
  Receipt Date: 20100302
  Transmission Date: 20100710
  Serious: Yes (Death, Other)
  Sender: FDA-Public Use
  Company Number: US-BAYER-201018094GPV

PATIENT
  Age: 48 Year
  Sex: Male

DRUGS (2)
  1. FLUDARABINE [Suspect]
     Indication: BONE MARROW TRANSPLANT
     Dosage: 5-DAY INFUSION OF 38.5 MG/M2 FLUDARABINE PER DAY
     Route: 042
  2. CYCLOPHOSPHAMIDE [Concomitant]
     Indication: BONE MARROW TRANSPLANT

REACTIONS (7)
  - ENCEPHALOPATHY [None]
  - HYPOAESTHESIA [None]
  - LEUKOENCEPHALOPATHY [None]
  - MUSCULAR WEAKNESS [None]
  - NERVOUS SYSTEM DISORDER [None]
  - NEUROTOXICITY [None]
  - VISUAL ACUITY REDUCED [None]
